FAERS Safety Report 15202204 (Version 1)
Quarter: 2018Q3

REPORT INFORMATION
  Report Type: Spontaneous
  Country: GB (occurrence: GB)
  Receive Date: 20180726
  Receipt Date: 20180726
  Transmission Date: 20181010
  Serious: Yes (Life-Threatening, Other)
  Sender: FDA-Public Use
  Company Number: GB-PFIZER INC-2018298905

PATIENT
  Age: 77 Year
  Sex: Male
  Weight: 75.8 kg

DRUGS (6)
  1. CHLORPHENAMINE MALEATE [Concomitant]
     Active Substance: CHLORPHENIRAMINE MALEATE
     Dosage: UNK
  2. CLINDAMYCIN HCL [Suspect]
     Active Substance: CLINDAMYCIN HYDROCHLORIDE
     Indication: EMPYEMA
     Dosage: 2400 MG, 1X/DAY
     Route: 048
     Dates: start: 20180611, end: 20180618
  3. SIMVASTATIN. [Concomitant]
     Active Substance: SIMVASTATIN
     Dosage: UNK
  4. MACROGOL 3350 [Concomitant]
     Active Substance: POLYETHYLENE GLYCOL 3350
     Dosage: UNK
  5. DOXYCYCLINE. [Concomitant]
     Active Substance: DOXYCYCLINE
     Dosage: UNK
  6. CASSIA SENNA [Concomitant]
     Active Substance: HERBALS\SENNOSIDES
     Dosage: UNK

REACTIONS (2)
  - Acute kidney injury [Recovering/Resolving]
  - Product use issue [Unknown]

NARRATIVE: CASE EVENT DATE: 20180611
